FAERS Safety Report 8372469-1 (Version None)
Quarter: 2012Q2

REPORT INFORMATION
  Report Type: 
  Country: None (occurrence: None)
  Receive Date: 20120521
  Receipt Date: 20120514
  Transmission Date: 20120825
  Serious: Yes (Other)
  Sender: FDA-Public Use
  Company Number: DE-UCBSA-053972

PATIENT
  Age: 78 Year
  Sex: Male
  Weight: 86 kg

DRUGS (3)
  1. VIMPAT [Suspect]
     Indication: PARTIAL SEIZURES
     Route: 048
     Dates: start: 20120101, end: 20120201
  2. LAMOTRIGINE [Concomitant]
     Indication: EPILEPSY
     Route: 048
     Dates: start: 20120101, end: 20120201
  3. LEVETIRACETAM [Suspect]

REACTIONS (1)
  - DERMATITIS ALLERGIC [None]
